FAERS Safety Report 10611584 (Version 2)
Quarter: 2014Q4

REPORT INFORMATION
  Report Type: Spontaneous
  Country: JP (occurrence: None)
  Receive Date: 20141124
  Receipt Date: 20141204
  Transmission Date: 20150529
  Serious: Yes (Death, Hospitalization)
  Sender: FDA-Public Use
  Company Number: B141117047

PATIENT
  Age: 32 Month
  Sex: Male

DRUGS (3)
  1. BUPHENYL [Suspect]
     Active Substance: SODIUM PHENYLBUTYRATE
     Indication: ORNITHINE TRANSCARBAMOYLASE DEFICIENCY
     Dosage: OVER 1 YEAR
     Route: 048
     Dates: end: 20141017
  2. ARGI-U (L-ARGININE HYDROCHLORIDE AND L-ARGININE) [Concomitant]
  3. UNKNOWN PRODUCT (BENZOIC ACID) [Concomitant]

REACTIONS (4)
  - Condition aggravated [None]
  - Multi-organ failure [None]
  - Ornithine transcarbamoylase deficiency [None]
  - Hyperammonaemia [None]

NARRATIVE: CASE EVENT DATE: 20141015
